FAERS Safety Report 9891935 (Version 1)
Quarter: 2014Q1

REPORT INFORMATION
  Report Type: Spontaneous
  Country: US (occurrence: US)
  Receive Date: 20140212
  Receipt Date: 20140212
  Transmission Date: 20141002
  Serious: Yes (Other)
  Sender: FDA-Public Use
  Company Number: US-BAYER-2014-018434

PATIENT
  Age: 88 Year
  Sex: Male
  Weight: 54 kg

DRUGS (5)
  1. PHILLIPS^ MILK OF MAGNESIA [Suspect]
     Indication: CONSTIPATION
     Dosage: 4 TABLESPOON,PRN
     Route: 048
  2. PHILLIPS^ MILK OF MAGNESIA [Suspect]
     Indication: CONSTIPATION
     Dosage: 4 TABLESPOON, PRN
  3. PHILLIPS^ MILK OF MAGNESIA [Suspect]
     Indication: CONSTIPATION
     Dosage: 2 TABLESPOONS
     Dates: start: 20140203, end: 20140203
  4. CALCIUM [Concomitant]
  5. PREDNISONE [Concomitant]

REACTIONS (3)
  - Rectal haemorrhage [None]
  - Drug effect delayed [None]
  - Drug effect delayed [None]
